FAERS Safety Report 16549097 (Version 4)
Quarter: 2019Q3

REPORT INFORMATION
  Report Type: Spontaneous
  Country: JP (occurrence: JP)
  Receive Date: 20190709
  Receipt Date: 20190924
  Transmission Date: 20191004
  Serious: Yes (Hospitalization, Other)
  Sender: FDA-Public Use
  Company Number: JP-GILEAD-2019-0416822

PATIENT
  Age: 57 Year
  Sex: Female

DRUGS (9)
  1. RIBAVIRIN. [Suspect]
     Active Substance: RIBAVIRIN
     Indication: CHRONIC HEPATITIS C
     Dosage: (200MG-400MG), BID
     Route: 048
     Dates: start: 20160310, end: 20160313
  2. DEPAKENE-R [Suspect]
     Active Substance: VALPROATE SODIUM
     Indication: LOSS OF CONSCIOUSNESS
     Dosage: UNK
     Route: 048
     Dates: start: 20160314
  3. URSO DS [Concomitant]
     Indication: CHRONIC HEPATITIS C
     Dosage: 200 MG, TID
     Route: 048
     Dates: start: 2000
  4. SOVALDI [Suspect]
     Active Substance: SOFOSBUVIR
     Indication: CHRONIC HEPATITIS C
     Dosage: 400 MG, QD
     Route: 048
     Dates: start: 20160310, end: 20160313
  5. GLYCYRON 2GO [Concomitant]
     Indication: CHRONIC HEPATITIS C
     Dosage: 50 MG, TID
     Route: 048
     Dates: start: 2000
  6. PAXIL [Concomitant]
     Active Substance: PAROXETINE HYDROCHLORIDE
     Indication: DEPRESSION
     Dosage: 25 MG, QD
     Route: 048
     Dates: start: 20081226
  7. SELOKEN COMP [Concomitant]
     Indication: HYPERTENSION
     Dosage: 20 MG, BID
     Route: 048
  8. RENIVACE [Concomitant]
     Active Substance: ENALAPRIL
     Indication: HYPERTENSION
     Dosage: 2.5 MG, QD
     Route: 048
  9. DEPAS [DICLOFENAC;DICYCLOVERINE HYDROCHLORIDE] [Concomitant]
     Indication: DEPRESSION
     Dosage: 0.5 MG, QD
     Route: 048
     Dates: start: 20081226

REACTIONS (5)
  - Liver disorder [Recovered/Resolved]
  - Loss of consciousness [Recovering/Resolving]
  - Platelet count decreased [Unknown]
  - Hepatitis C antibody positive [Unknown]
  - Hepatitis C virus test positive [Unknown]

NARRATIVE: CASE EVENT DATE: 20160314
